FAERS Safety Report 6392170-3 (Version None)
Quarter: 2009Q4

REPORT INFORMATION
  Report Type: 
  Country: None (occurrence: None)
  Receive Date: 20091007
  Receipt Date: 20090923
  Transmission Date: 20100525
  Serious: Yes (Other)
  Sender: FDA-Public Use
  Company Number: US-PFIZER INC-2009274978

PATIENT
  Sex: Female
  Weight: 104.76 kg

DRUGS (1)
  1. GEODON [Suspect]
     Indication: HALLUCINATION, AUDITORY
     Dosage: 40 MG, 2X/DAY
     Dates: start: 20090901, end: 20090901

REACTIONS (1)
  - BLINDNESS UNILATERAL [None]
